FAERS Safety Report 8585946-5 (Version None)
Quarter: 2012Q3

REPORT INFORMATION
  Report Type: 
  Country: None (occurrence: None)
  Receive Date: 20120810
  Receipt Date: 20120801
  Transmission Date: 20120928
  Serious: Yes (Death)
  Sender: FDA-Public Use
  Company Number: IT-CELGENEUS-083-21880-11113558

PATIENT
  Sex: Female

DRUGS (5)
  1. REVLIMID [Suspect]
     Route: 048
     Dates: start: 20091030, end: 20100218
  2. MYELOSTIM [Concomitant]
     Route: 065
  3. DEXAMETHASONE [Concomitant]
     Route: 065
  4. ENOXAPARIN SODIUM [Concomitant]
     Route: 065
  5. PROPAFENONE HCL [Concomitant]
     Route: 065

REACTIONS (1)
  - PRIMARY MEDIASTINAL LARGE B-CELL LYMPHOMA [None]
